FAERS Safety Report 5484039-3 (Version None)
Quarter: 2007Q4

REPORT INFORMATION
  Report Type: 
  Country: None (occurrence: None)
  Receive Date: 20071012
  Receipt Date: 20071004
  Transmission Date: 20080405
  Serious: Yes (Hospitalization, Other)
  Sender: FDA-Public Use
  Company Number: US-ROCHE-483878

PATIENT
  Age: 37 Year
  Sex: Male

DRUGS (5)
  1. FUZEON [Suspect]
     Route: 065
     Dates: start: 20070101
  2. FUZEON [Suspect]
     Route: 065
     Dates: start: 20070401
  3. NORVIR [Concomitant]
  4. VIREAD [Concomitant]
  5. UNSPECIFIED DRUG [Concomitant]
     Dosage: DRUG REPORTED AS 'ACTOVIS'.

REACTIONS (9)
  - ASTHENIA [None]
  - CYTOMEGALOVIRUS INFECTION [None]
  - HODGKIN'S DISEASE [None]
  - HYPOXIA [None]
  - INFLUENZA LIKE ILLNESS [None]
  - INJECTION SITE REACTION [None]
  - NEUTROPHIL COUNT DECREASED [None]
  - PAIN IN EXTREMITY [None]
  - RASH [None]
